FAERS Safety Report 8263836-5 (Version None)
Quarter: 2012Q2

REPORT INFORMATION
  Report Type: 
  Country: None (occurrence: None)
  Receive Date: 20120405
  Receipt Date: 20120328
  Transmission Date: 20120825
  Serious: Yes (Hospitalization, Other)
  Sender: FDA-Public Use
  Company Number: US-MERCK-1111USA02194

PATIENT
  Age: 76 Year
  Sex: Female
  Weight: 57 kg

DRUGS (7)
  1. FOSAMAX [Suspect]
     Indication: OSTEOPENIA
     Route: 048
     Dates: start: 20020325, end: 20100101
  2. ARIMIDEX [Suspect]
     Indication: BREAST CANCER
     Route: 065
     Dates: start: 20020301, end: 20070301
  3. ALENDRONATE SODIUM [Suspect]
     Indication: PROPHYLAXIS
     Route: 048
     Dates: start: 20051201, end: 20091201
  4. FOSAMAX [Suspect]
     Indication: RHEUMATOID ARTHRITIS
     Route: 048
     Dates: start: 20020325, end: 20100101
  5. HYDROXYCHLOROQUINE SULFATE [Concomitant]
     Indication: RHEUMATOID ARTHRITIS
     Route: 065
     Dates: start: 20000101
  6. IBUPROFEN [Concomitant]
     Indication: ARTHRALGIA
     Route: 048
  7. ALENDRONATE SODIUM [Suspect]
     Indication: OSTEOPENIA
     Route: 048
     Dates: start: 20051201, end: 20091201

REACTIONS (82)
  - BASAL CELL CARCINOMA [None]
  - ULNA FRACTURE [None]
  - ASTHMA [None]
  - CELLULITIS [None]
  - GASTROOESOPHAGEAL REFLUX DISEASE [None]
  - CORNEAL DYSTROPHY [None]
  - GENITAL DISCHARGE [None]
  - STRESS URINARY INCONTINENCE [None]
  - POLLAKIURIA [None]
  - JOINT EFFUSION [None]
  - INSOMNIA [None]
  - DENTAL CARIES [None]
  - FEMUR FRACTURE [None]
  - SPONDYLOLISTHESIS [None]
  - CHRONIC SINUSITIS [None]
  - CONNECTIVE TISSUE DISORDER [None]
  - HYPERSENSITIVITY [None]
  - HEADACHE [None]
  - OEDEMA [None]
  - SCOLIOSIS [None]
  - SACROILIITIS [None]
  - RIB FRACTURE [None]
  - ARTHROPATHY [None]
  - NAUSEA [None]
  - SPINAL OSTEOARTHRITIS [None]
  - LIP ULCERATION [None]
  - SCIATICA [None]
  - BLOOD CREATININE INCREASED [None]
  - EPISTAXIS [None]
  - ESSENTIAL HYPERTENSION [None]
  - DYSPNOEA [None]
  - CERVICOBRACHIAL SYNDROME [None]
  - TOOTHACHE [None]
  - PAIN IN EXTREMITY [None]
  - DRY MOUTH [None]
  - DEAFNESS TRAUMATIC [None]
  - ARTHRALGIA [None]
  - OSTEOPOROSIS [None]
  - LUMBAR VERTEBRAL FRACTURE [None]
  - VERTEBRAL FORAMINAL STENOSIS [None]
  - MENISCUS LESION [None]
  - HYPOTENSION [None]
  - DENTAL PULP DISORDER [None]
  - TIBIA FRACTURE [None]
  - CONTUSION [None]
  - HYPERLIPIDAEMIA [None]
  - FOOT DEFORMITY [None]
  - WHEEZING [None]
  - VERTIGO [None]
  - MUSCLE RUPTURE [None]
  - TOOTH DISORDER [None]
  - CATARACT [None]
  - PAIN IN JAW [None]
  - LACERATION [None]
  - LIGAMENT SPRAIN [None]
  - FATIGUE [None]
  - DECREASED APPETITE [None]
  - PARAESTHESIA [None]
  - FALL [None]
  - OSTEOARTHRITIS [None]
  - DIARRHOEA [None]
  - AFFECTIVE DISORDER [None]
  - SWELLING [None]
  - STERNAL FRACTURE [None]
  - VITAMIN D DEFICIENCY [None]
  - ATROPHIC VULVOVAGINITIS [None]
  - FISTULA DISCHARGE [None]
  - ADVERSE EVENT [None]
  - ATROPHY [None]
  - BRONCHITIS [None]
  - MUSCULOSKELETAL PAIN [None]
  - BLOOD CHOLESTEROL INCREASED [None]
  - COLITIS MICROSCOPIC [None]
  - HYPONATRAEMIA [None]
  - HOT FLUSH [None]
  - SYNOVIAL CYST [None]
  - RASH [None]
  - SKIN LESION [None]
  - URINARY TRACT INFECTION [None]
  - TOOTH EXTRACTION [None]
  - ROTATOR CUFF SYNDROME [None]
  - COUGH [None]
